FAERS Safety Report 15789384 (Version 1)
Quarter: 2019Q1

REPORT INFORMATION
  Report Type: Spontaneous
  Country: US (occurrence: US)
  Receive Date: 20190104
  Receipt Date: 20190104
  Transmission Date: 20190417
  Serious: No
  Sender: FDA-Public Use
  Company Number: US-GLAXOSMITHKLINE-US2018229604

PATIENT
  Sex: Female

DRUGS (2)
  1. BREO ELLIPTA [Suspect]
     Active Substance: FLUTICASONE FUROATE\VILANTEROL TRIFENATATE
     Indication: ASTHMA
     Dosage: 1 PUFF(S), QD
     Route: 055
     Dates: start: 201811
  2. VENTOLIN HFA [Suspect]
     Active Substance: ALBUTEROL SULFATE
     Route: 055

REACTIONS (8)
  - Blood pressure increased [Not Recovered/Not Resolved]
  - Secretion discharge [Recovered/Resolved]
  - Oral discomfort [Recovered/Resolved]
  - Throat irritation [Recovered/Resolved]
  - Skin lesion [Recovered/Resolved]
  - Hypoaesthesia [Recovered/Resolved]
  - Lacrimation increased [Recovered/Resolved]
  - Hypoaesthesia eye [Recovered/Resolved]

NARRATIVE: CASE EVENT DATE: 2018
